FAERS Safety Report 25533166 (Version 6)
Quarter: 2025Q4

REPORT INFORMATION
  Report Type: Report from Study
  Country: EU (occurrence: EU)
  Receive Date: 20250709
  Receipt Date: 20251022
  Transmission Date: 20260118
  Serious: Yes (Other)
  Sender: ROCHE
  Company Number: EU-ROCHE-10000299733

PATIENT
  Age: 67 Year
  Sex: Female
  Weight: 93 kg

DRUGS (15)
  1. ATEZOLIZUMAB [Suspect]
     Active Substance: ATEZOLIZUMAB
     Indication: Hepatocellular carcinoma
     Dosage: ON 03-MAR-2025, SHE RECEIVED MOST RECENT DOSE OF ATEZOLIZUMAB PRIOR TO AE AND SAE
     Route: 042
     Dates: start: 20230302
  2. BEVACIZUMAB [Suspect]
     Active Substance: BEVACIZUMAB
     Indication: Hepatocellular carcinoma
     Route: 065
     Dates: start: 20230302
  3. BEVACIZUMAB [Suspect]
     Active Substance: BEVACIZUMAB
     Route: 065
  4. BEVACIZUMAB [Suspect]
     Active Substance: BEVACIZUMAB
     Route: 065
  5. DEXAMETHASONE [Concomitant]
     Active Substance: DEXAMETHASONE
     Dates: start: 20250306, end: 20250306
  6. ACARD [Concomitant]
  7. CO-WVLSACOR [Concomitant]
  8. METFORMIN HYDROCHLORIDE [Concomitant]
     Active Substance: METFORMIN HYDROCHLORIDE
  9. INSULIN LIPSPRO SANFIL [Concomitant]
  10. PRIMACOR [Concomitant]
     Active Substance: MILRINONE LACTATE
  11. ATORVASTATIN CALCIUM [Concomitant]
     Active Substance: ATORVASTATIN CALCIUM
  12. HUMULIN NOS [Concomitant]
     Active Substance: INSULIN HUMAN
  13. OMEPRAZOLE [Concomitant]
     Active Substance: OMEPRAZOLE
  14. BISACARD [Concomitant]
  15. SORAFENIB [Concomitant]
     Active Substance: SORAFENIB
     Dates: start: 20250731

REACTIONS (1)
  - Renal failure [Not Recovered/Not Resolved]

NARRATIVE: CASE EVENT DATE: 20250327
